FAERS Safety Report 7178934-7 (Version None)
Quarter: 2010Q4

REPORT INFORMATION
  Report Type: 
  Country: None (occurrence: None)
  Receive Date: 20101217
  Receipt Date: 20101217
  Transmission Date: 20110411
  Serious: Yes (Hospitalization)
  Sender: FDA-Public Use
  Company Number: None

PATIENT
  Sex: Female
  Weight: 9.5 kg

DRUGS (2)
  1. VINCRISTINE SULFATE [Suspect]
     Dosage: 1.4 MG
  2. CAMPTOSAR [Suspect]
     Dosage: 125 MG

REACTIONS (6)
  - AIR EMBOLISM [None]
  - ASPIRATION [None]
  - BRADYCARDIA [None]
  - CARDIAC DISORDER [None]
  - CARDIO-RESPIRATORY ARREST [None]
  - UNRESPONSIVE TO STIMULI [None]
